FAERS Safety Report 4907809-6 (Version None)
Quarter: 2006Q1

REPORT INFORMATION
  Report Type: 
  Country: None (occurrence: None)
  Receive Date: 20060210
  Receipt Date: 20060110
  Transmission Date: 20060701
  Serious: Yes (Other)
  Sender: FDA-Public Use
  Company Number: DE-AMGEN-UK164335

PATIENT
  Age: 43 Year
  Sex: Male
  Weight: 85 kg

DRUGS (9)
  1. MIMPARA [Suspect]
     Indication: HYPERPARATHYROIDISM SECONDARY
     Route: 048
     Dates: start: 20050603, end: 20051219
  2. ASPIRIN [Concomitant]
     Route: 048
  3. DILATREND [Concomitant]
     Route: 048
  4. AMLODIPINE [Concomitant]
     Route: 048
  5. AQUAPHOR [Concomitant]
     Route: 048
  6. RAMIPRIL [Concomitant]
     Route: 048
  7. RENAGEL [Concomitant]
     Route: 048
  8. CALCIUM ACETATE [Concomitant]
     Route: 048
  9. DREISAVIT [Concomitant]
     Route: 048

REACTIONS (3)
  - DERMATITIS ALLERGIC [None]
  - PRURITUS [None]
  - RASH [None]
